FAERS Safety Report 7879053-4 (Version None)
Quarter: 2011Q4

REPORT INFORMATION
  Report Type: 
  Country: None (occurrence: None)
  Receive Date: 20111101
  Receipt Date: 20111026
  Transmission Date: 20120403
  Serious: Yes (Hospitalization)
  Sender: FDA-Public Use
  Company Number: PHEH2011US07911

PATIENT
  Age: 60 Year
  Sex: Female

DRUGS (1)
  1. ZOMETA [Suspect]

REACTIONS (8)
  - GENERAL PHYSICAL HEALTH DETERIORATION [None]
  - MUSCULOSKELETAL CHEST PAIN [None]
  - INFLUENZA LIKE ILLNESS [None]
  - PYREXIA [None]
  - ASTHENIA [None]
  - BACK PAIN [None]
  - PAIN IN EXTREMITY [None]
  - CHILLS [None]
